FAERS Safety Report 6277652-7 (Version None)
Quarter: 2009Q3

REPORT INFORMATION
  Report Type: 
  Country: None (occurrence: None)
  Receive Date: 20090722
  Receipt Date: 20090707
  Transmission Date: 20100115
  Serious: Yes (Hospitalization)
  Sender: FDA-Public Use
  Company Number: NL-GENENTECH-287056

PATIENT
  Sex: Male

DRUGS (8)
  1. BEVACIZUMAB [Suspect]
     Indication: COLORECTAL CANCER
     Dosage: 465 MG, UNK
     Route: 042
     Dates: start: 20090116, end: 20090227
  2. CAPECITABINE [Suspect]
     Indication: COLORECTAL CANCER
     Dosage: 3600 MG, UNK
     Route: 048
     Dates: start: 20090116, end: 20090313
  3. OXALIPLATIN [Suspect]
     Indication: COLORECTAL CANCER
     Dosage: 220 MG, UNK
     Route: 042
     Dates: start: 20090116, end: 20090227
  4. PARACETAMOL [Concomitant]
     Indication: DRUG USE FOR UNKNOWN INDICATION
  5. TINZAPARIN [Concomitant]
     Indication: DRUG USE FOR UNKNOWN INDICATION
  6. TRAMADOL HCL [Concomitant]
     Indication: DRUG USE FOR UNKNOWN INDICATION
  7. FLUIMUCIL [Concomitant]
     Indication: DRUG USE FOR UNKNOWN INDICATION
  8. IPRATROPIUM + SALBUTAMOL [Concomitant]
     Indication: DRUG USE FOR UNKNOWN INDICATION

REACTIONS (2)
  - METASTASES TO LUNG [None]
  - PLEURAL EFFUSION [None]
